FAERS Safety Report 4851537-2 (Version None)
Quarter: 2005Q4

REPORT INFORMATION
  Report Type: 
  Country: None (occurrence: None)
  Receive Date: 20051212
  Receipt Date: 20051129
  Transmission Date: 20060501
  Serious: Yes (Other)
  Sender: FDA-Public Use
  Company Number: BE-ROCHE-426496

PATIENT
  Age: 20 Year
  Sex: Female

DRUGS (3)
  1. ROACCUTANE [Suspect]
     Indication: DRUG USE FOR UNKNOWN INDICATION
     Route: 048
     Dates: start: 20050905
  2. ROACCUTANE [Suspect]
     Dosage: DOSE INCREASED
     Route: 048
     Dates: start: 20050925
  3. ROACCUTANE [Suspect]
     Route: 048

REACTIONS (4)
  - FACIAL PAIN [None]
  - RASH PUSTULAR [None]
  - SCAR [None]
  - SUICIDAL IDEATION [None]
